FAERS Safety Report 7304507-9 (Version None)
Quarter: 2011Q1

REPORT INFORMATION
  Report Type: 
  Country: None (occurrence: None)
  Receive Date: 20110221
  Receipt Date: 20110211
  Transmission Date: 20110831
  Serious: Yes (Hospitalization, Other)
  Sender: FDA-Public Use
  Company Number: JP-SANOFI-AVENTIS-2010SA071859

PATIENT
  Age: 59 Year
  Sex: Female

DRUGS (14)
  1. AVASTIN [Suspect]
     Indication: COLON CANCER METASTATIC
     Route: 041
     Dates: start: 20090813, end: 20090813
  2. FLUOROURACIL [Concomitant]
     Dates: start: 20100205, end: 20100205
  3. ALLEGRA [Concomitant]
     Indication: PREMEDICATION
     Dates: start: 20100402
  4. DEXAMETHASONE SODIUM PHOSPHATE [Concomitant]
     Dates: start: 20100618
  5. ELPLAT [Suspect]
     Indication: COLON CANCER METASTATIC
     Route: 041
     Dates: start: 20090813, end: 20090813
  6. AVASTIN [Suspect]
     Route: 041
     Dates: start: 20101029, end: 20101029
  7. FLUOROURACIL [Concomitant]
     Dates: start: 20090813, end: 20090813
  8. TS-1 [Suspect]
     Indication: COLON CANCER METASTATIC
     Route: 048
     Dates: start: 20100219, end: 20101029
  9. TAKEPRON [Concomitant]
     Dates: start: 20100423
  10. CALCIUM LEVOFOLINATE [Concomitant]
     Dates: start: 20100205, end: 20100205
  11. GRANISETRON HCL [Concomitant]
     Dates: start: 20100618, end: 20100903
  12. RESTAMIN [Concomitant]
     Dates: start: 20100709
  13. ELPLAT [Suspect]
     Route: 041
     Dates: start: 20101029, end: 20101029
  14. CALCIUM LEVOFOLINATE [Concomitant]
     Dates: start: 20090813, end: 20090813

REACTIONS (4)
  - HAEMOLYTIC ANAEMIA [None]
  - WHITE BLOOD CELL COUNT DECREASED [None]
  - DISSEMINATED INTRAVASCULAR COAGULATION [None]
  - PLATELET COUNT DECREASED [None]
